FAERS Safety Report 6343105-0 (Version None)
Quarter: 2009Q3

REPORT INFORMATION
  Report Type: 
  Country: None (occurrence: None)
  Receive Date: 20090908
  Receipt Date: 20090831
  Transmission Date: 20100115
  Serious: Yes (Other)
  Sender: FDA-Public Use
  Company Number: US-BAYER-200931749NA

PATIENT
  Age: 17 Year
  Sex: Female
  Weight: 73 kg

DRUGS (1)
  1. YAZ [Suspect]
     Indication: CONTRACEPTION
     Dates: end: 20090101

REACTIONS (7)
  - BLOOD PRESSURE INCREASED [None]
  - CARDIAC DISORDER [None]
  - CHEST DISCOMFORT [None]
  - HEART RATE INCREASED [None]
  - KIDNEY INFECTION [None]
  - SMEAR CERVIX ABNORMAL [None]
  - URINARY TRACT INFECTION [None]
